FAERS Safety Report 10648551 (Version 1)
Quarter: 2014Q4

REPORT INFORMATION
  Report Type: Spontaneous
  Country: JP (occurrence: JP)
  Receive Date: 20141212
  Receipt Date: 20141212
  Transmission Date: 20150529
  Serious: Yes (Other)
  Sender: FDA-Public Use
  Company Number: JP-BAYER-2014-180840

PATIENT
  Weight: 3 kg

DRUGS (5)
  1. NIFEDIPINE. [Suspect]
     Active Substance: NIFEDIPINE
     Dosage: UNK
     Route: 064
  2. RITODRINE HYDROCHLORIDE [Concomitant]
     Active Substance: RITODRINE HYDROCHLORIDE
     Dosage: DAILY DOSE 100 MG
     Route: 064
  3. OXYTOCIN. [Concomitant]
     Active Substance: OXYTOCIN
     Route: 064
  4. RITODRINE HYDROCHLORIDE [Concomitant]
     Active Substance: RITODRINE HYDROCHLORIDE
     Dosage: DAILY DOSE 250 MG
     Route: 064
  5. PROSTIN E2 [Concomitant]
     Active Substance: DINOPROSTONE
     Route: 064

REACTIONS (1)
  - Bradycardia foetal [Recovering/Resolving]
